FAERS Safety Report 18408816 (Version 1)
Quarter: 2020Q4

REPORT INFORMATION
  Report Type: Spontaneous
  Country: FR (occurrence: FR)
  Receive Date: 20201021
  Receipt Date: 20201021
  Transmission Date: 20210114
  Serious: Yes (Hospitalization)
  Sender: FDA-Public Use
  Company Number: FR-TEVA-2020-FR-1839708

PATIENT
  Age: 28 Year
  Sex: Male
  Weight: 120 kg

DRUGS (16)
  1. BISOPROLOL (FUMARATE ACIDE DE) [Suspect]
     Active Substance: BISOPROLOL FUMARATE
     Indication: HYPERTENSION
     Route: 048
     Dates: start: 20200726, end: 20200821
  2. DALACINE 600 MG, SOLUTION INJECTABLE (CLINDAMYCIN PHOSPHATE) [Suspect]
     Active Substance: CLINDAMYCIN PHOSPHATE
     Dosage: 600MG
     Route: 042
     Dates: start: 20200715, end: 20200803
  3. TAVANIC 5 MG/ML, SOLUTION POUR PERFUSION [Suspect]
     Active Substance: LEVOFLOXACIN
     Indication: SINUSITIS
     Dosage: 1000MG
     Route: 042
     Dates: start: 20200720, end: 20200806
  4. TAZOCILLINE 4 G/500 MG, POUDRE POUR SOLUTION POUR PERFUSION [Suspect]
     Active Substance: PIPERACILLIN SODIUM\TAZOBACTAM SODIUM
     Dosage: 16G
     Route: 042
     Dates: start: 20200712, end: 20200713
  5. CALCIPARINE [Suspect]
     Active Substance: HEPARIN CALCIUM
     Indication: THROMBOSIS PROPHYLAXIS
     Dosage: 10,0000 IU
     Route: 058
     Dates: start: 20200713, end: 20200821
  6. PROPOFOL. [Concomitant]
     Active Substance: PROPOFOL
  7. ORBENINE [Suspect]
     Active Substance: CLOXACILLIN SODIUM
     Dosage: 12G
     Route: 042
     Dates: start: 20200714, end: 20200719
  8. DEXMEDETOMIDINE (CHLORHYDRATE DE) [Concomitant]
  9. LOXAPAC 50 MG/2 ML, SOLUTION INJECTABLE EN AMPOULE (IM) [Suspect]
     Active Substance: LOXAPINE
     Indication: PSYCHOTIC DISORDER
     Route: 042
     Dates: start: 20200724, end: 20200819
  10. PARACETAMOL [Concomitant]
     Active Substance: ACETAMINOPHEN
  11. LEVOTHYROX [Concomitant]
     Active Substance: LEVOTHYROXINE
  12. MIDAZOLAM. [Concomitant]
     Active Substance: MIDAZOLAM
  13. ORBENINE [Suspect]
     Active Substance: CLOXACILLIN SODIUM
     Indication: PNEUMONIA
     Dosage: 12GBQ
     Route: 042
     Dates: start: 20200803, end: 20200808
  14. DALACINE 600 MG, SOLUTION INJECTABLE (CLINDAMYCIN PHOSPHATE) [Suspect]
     Active Substance: CLINDAMYCIN PHOSPHATE
     Indication: PNEUMONIA
     Dosage: 600MG
     Route: 042
     Dates: start: 20200808, end: 20200812
  15. INEXIUM 40 MG, POUDRE POUR SOLUTION INJECTABLE OU POUR PERFUSION [Suspect]
     Active Substance: ESOMEPRAZOLE
     Indication: PROPHYLAXIS AGAINST GASTROINTESTINAL ULCER
     Dosage: 20MG
     Route: 042
     Dates: start: 20200712, end: 20200819
  16. TAZOCILLINE 4 G/500 MG, POUDRE POUR SOLUTION POUR PERFUSION [Suspect]
     Active Substance: PIPERACILLIN SODIUM\TAZOBACTAM SODIUM
     Indication: PNEUMONIA
     Dosage: 16G
     Route: 042
     Dates: start: 20200719, end: 20200803

REACTIONS (2)
  - Toxic epidermal necrolysis [Recovered/Resolved]
  - Drug reaction with eosinophilia and systemic symptoms [Recovered/Resolved]

NARRATIVE: CASE EVENT DATE: 20200808
